FAERS Safety Report 7980000-5 (Version None)
Quarter: 2011Q4

REPORT INFORMATION
  Report Type: 
  Country: None (occurrence: None)
  Receive Date: 20111214
  Receipt Date: 20111207
  Transmission Date: 20120403
  Serious: Yes (Hospitalization)
  Sender: FDA-Public Use
  Company Number: AU-B.I. PHARMACEUTICALS,INC./RIDGEFIELD-2011-AU-02389AU

PATIENT
  Age: 90 Year
  Sex: Male

DRUGS (1)
  1. PRADAXA [Suspect]
     Indication: ATRIAL FIBRILLATION
     Dates: start: 20110601

REACTIONS (5)
  - CREATININE RENAL CLEARANCE DECREASED [None]
  - HAEMORRHAGE [None]
  - BLOOD UREA INCREASED [None]
  - COLONIC POLYP [None]
  - HAEMOGLOBIN DECREASED [None]
